FAERS Safety Report 22089710 (Version 1)
Quarter: 2023Q1

REPORT INFORMATION
  Report Type: Spontaneous
  Country: US (occurrence: None)
  Receive Date: 20230311
  Receipt Date: 20230311
  Transmission Date: 20230417
  Serious: Yes (Death, Other)
  Sender: FDA-Public Use
  Company Number: None

PATIENT
  Age: 65 Year
  Sex: Male

DRUGS (1)
  1. BOSENTAN [Suspect]
     Active Substance: BOSENTAN
     Indication: Pulmonary hypertension
     Dosage: FREQUENCY : TWICE A DAY;?
     Route: 048
     Dates: start: 20190606, end: 20230110

REACTIONS (6)
  - Pulmonary oedema [None]
  - Hypoxia [None]
  - Oxygen saturation decreased [None]
  - SARS-CoV-2 test positive [None]
  - Septic shock [None]
  - Streptococcal bacteraemia [None]

NARRATIVE: CASE EVENT DATE: 20230111
